FAERS Safety Report 6122014-6 (Version None)
Quarter: 2009Q1

REPORT INFORMATION
  Report Type: 
  Country: None (occurrence: None)
  Receive Date: 20090316
  Receipt Date: 20090310
  Transmission Date: 20090719
  Serious: Yes (Other)
  Sender: FDA-Public Use
  Company Number: FPI-09-REP-0061

PATIENT
  Age: 31 Year
  Sex: Female

DRUGS (2)
  1. REPRONEX [Suspect]
     Indication: OVULATION INDUCTION
  2. CLOMIPHENE CITRATE [Suspect]
     Indication: ANOVULATORY CYCLE
     Dosage: 50MG, 100 MG

REACTIONS (3)
  - ABORTION SPONTANEOUS [None]
  - DRUG EXPOSURE DURING PREGNANCY [None]
  - ECTOPIC PREGNANCY [None]
